FAERS Safety Report 9353467 (Version 2)
Quarter: 2013Q3

REPORT INFORMATION
  Report Type: Report from Study
  Country: JP (occurrence: JP)
  Receive Date: 20130618
  Receipt Date: 20130806
  Transmission Date: 20140515
  Serious: Yes (Death)
  Sender: FDA-Public Use
  Company Number: JP-CELGENEUS-087-21880-13061998

PATIENT
  Age: 68 Year
  Sex: Female

DRUGS (15)
  1. REVLIMID [Suspect]
     Indication: MYELODYSPLASTIC SYNDROME
     Dosage: 10 MILLIGRAM
     Route: 048
     Dates: start: 20110527, end: 20110616
  2. REVLIMID [Suspect]
     Dosage: 10 MILLIGRAM
     Route: 048
     Dates: start: 20110624, end: 20110714
  3. VIDAZA [Suspect]
     Indication: MYELODYSPLASTIC SYNDROME
     Dosage: 110 MILLIGRAM
     Route: 058
     Dates: start: 20110802, end: 20110808
  4. VIDAZA [Suspect]
     Dosage: 110 MILLIGRAM
     Route: 058
     Dates: start: 20110830, end: 20110905
  5. VIDAZA [Suspect]
     Dosage: 110 MILLIGRAM
     Route: 041
     Dates: start: 20110927, end: 20111003
  6. VIDAZA [Suspect]
     Dosage: 110 MILLIGRAM
     Route: 041
     Dates: start: 20111026, end: 20111101
  7. VIDAZA [Suspect]
     Dosage: 110 MILLIGRAM
     Route: 041
     Dates: start: 20111123, end: 20111129
  8. RBC TRANSFUSION [Concomitant]
     Indication: PRODUCT USED FOR UNKNOWN INDICATION
     Dosage: 2 UNITS
     Route: 065
     Dates: start: 20110601, end: 20110601
  9. RBC TRANSFUSION [Concomitant]
     Dosage: 2 UNITS
     Route: 065
     Dates: start: 20110613, end: 20110613
  10. RBC TRANSFUSION [Concomitant]
     Dosage: 2 UNITS
     Route: 065
     Dates: start: 20110622, end: 20110622
  11. RBC TRANSFUSION [Concomitant]
     Dosage: 2 UNITS
     Route: 065
     Dates: start: 20110629, end: 20110629
  12. RBC TRANSFUSION [Concomitant]
     Dosage: 2 UNITS
     Route: 065
     Dates: start: 20110706, end: 20110706
  13. RBC TRANSFUSION [Concomitant]
     Dosage: 2 UNITS
     Route: 065
     Dates: start: 20110713, end: 20110713
  14. RBC TRANSFUSION [Concomitant]
     Dosage: 2 UNITS
     Route: 065
     Dates: start: 20110719, end: 20110719
  15. RBC TRANSFUSION [Concomitant]
     Dosage: 2 UNITS
     Route: 065
     Dates: start: 20110725, end: 20110725

REACTIONS (4)
  - Acute myeloid leukaemia [Fatal]
  - Eosinophil percentage increased [Recovered/Resolved]
  - Basophil count increased [Recovered/Resolved]
  - Rash [Recovered/Resolved]
